FAERS Safety Report 4819849-6 (Version None)
Quarter: 2005Q4

REPORT INFORMATION
  Report Type: 
  Country: None (occurrence: None)
  Receive Date: 20051102
  Receipt Date: 20051026
  Transmission Date: 20060501
  Serious: Yes (Death, Life-Threatening, Hospitalization)
  Sender: FDA-Public Use
  Company Number: SU-2005-003925

PATIENT
  Age: 58 Year
  Sex: Male

DRUGS (3)
  1. OLMESARTAN [Suspect]
     Indication: HYPERTENSION
     Dosage: MG PO
     Route: 048
  2. LITHIUM [Concomitant]
  3. OSCAAR [Concomitant]

REACTIONS (9)
  - ACUTE MYOCARDIAL INFARCTION [None]
  - ATRIOVENTRICULAR BLOCK COMPLETE [None]
  - CARDIAC ARREST [None]
  - CARDIOGENIC SHOCK [None]
  - DIALYSIS [None]
  - METABOLIC ACIDOSIS [None]
  - NAUSEA [None]
  - PULMONARY OEDEMA [None]
  - RENAL FAILURE ACUTE [None]
